FAERS Safety Report 20530836 (Version 8)
Quarter: 2024Q2

REPORT INFORMATION
  Report Type: Spontaneous
  Country: US (occurrence: US)
  Receive Date: 20220301
  Receipt Date: 20240627
  Transmission Date: 20240716
  Serious: Yes (Hospitalization, Disabling, Other)
  Sender: FDA-Public Use
  Company Number: US-ORGANON-O2202USA002291

PATIENT
  Sex: Male
  Weight: 14.51 kg

DRUGS (5)
  1. SINGULAIR [Suspect]
     Active Substance: MONTELUKAST SODIUM
     Indication: Asthma
     Dosage: UNK
     Route: 048
     Dates: start: 2008, end: 2015
  2. SINGULAIR [Suspect]
     Active Substance: MONTELUKAST SODIUM
     Indication: Hypersensitivity
     Dosage: UNK
     Route: 048
     Dates: start: 2012, end: 2015
  3. SINGULAIR [Suspect]
     Active Substance: MONTELUKAST SODIUM
     Dosage: 5 MILLIGRAM, 1X DAY
     Route: 048
  4. SINGULAIR [Suspect]
     Active Substance: MONTELUKAST SODIUM
     Dosage: UNK UNK, BID
     Route: 048
  5. PROVENTIL [Concomitant]
     Active Substance: ALBUTEROL
     Indication: Asthma
     Dosage: UNK

REACTIONS (24)
  - Suicidal ideation [Not Recovered/Not Resolved]
  - Major depression [Not Recovered/Not Resolved]
  - Neuropsychological symptoms [Not Recovered/Not Resolved]
  - Bipolar disorder [Not Recovered/Not Resolved]
  - Obsessive-compulsive disorder [Not Recovered/Not Resolved]
  - Intentional self-injury [Not Recovered/Not Resolved]
  - Attention deficit hyperactivity disorder [Not Recovered/Not Resolved]
  - Autism spectrum disorder [Not Recovered/Not Resolved]
  - Post-traumatic stress disorder [Unknown]
  - Reactive attachment disorder [Unknown]
  - Schizoaffective disorder [Unknown]
  - Anger [Not Recovered/Not Resolved]
  - Anxiety [Not Recovered/Not Resolved]
  - Insomnia [Not Recovered/Not Resolved]
  - Chest pain [Unknown]
  - Dyspnoea [Unknown]
  - Aggression [Unknown]
  - Impulsive behaviour [Unknown]
  - Disturbance in social behaviour [Unknown]
  - Aphasia [Unknown]
  - Paranoia [Unknown]
  - Product prescribing issue [Unknown]
  - Wrong dosage form [Unknown]
  - Incorrect dose administered [Unknown]

NARRATIVE: CASE EVENT DATE: 20080101
